FAERS Safety Report 21161222 (Version 1)
Quarter: 2022Q3

REPORT INFORMATION
  Report Type: Spontaneous
  Country: US (occurrence: None)
  Receive Date: 20220801
  Receipt Date: 20220801
  Transmission Date: 20221027
  Serious: Yes (unspecified)
  Sender: FDA-Public Use
  Company Number: None

PATIENT
  Age: 36 Year
  Sex: Female

DRUGS (1)
  1. ADVAIR DISKUS [Suspect]
     Active Substance: FLUTICASONE PROPIONATE\SALMETEROL XINAFOATE
     Indication: Asthma
     Dosage: FREQUENCY : TWICE A DAY;?
     Route: 048
     Dates: start: 20220401, end: 20220405

REACTIONS (5)
  - Cough [None]
  - Condition aggravated [None]
  - Nausea [None]
  - Productive cough [None]
  - Respiratory complication associated with device [None]

NARRATIVE: CASE EVENT DATE: 20220405
